FAERS Safety Report 8036421-8 (Version None)
Quarter: 2012Q1

REPORT INFORMATION
  Report Type: 
  Country: None (occurrence: None)
  Receive Date: 20120106
  Receipt Date: 20111228
  Transmission Date: 20120608
  Serious: Yes (Hospitalization)
  Sender: FDA-Public Use
  Company Number: 2011HGS-003047

PATIENT
  Age: 54 Year
  Sex: Female

DRUGS (6)
  1. IMURAN [Concomitant]
  2. BENLYSTA [Suspect]
     Indication: SYSTEMIC LUPUS ERYTHEMATOSUS
     Dosage: 1 IN 28 D
     Dates: start: 20110801
  3. CORTICOSTEROIDS (CORTICOSTEROIDS) (NULL) [Concomitant]
  4. SYNTHROID (LEVOTHYROXINE SODIUM) (LEVOTHYROXINE SODIUM) [Concomitant]
  5. PREDNISONE [Concomitant]
  6. PLAQUENIL (HYDROXYCHLOROQUINE PHOSPHATE) (HYDROXYCHLOROQUINE PHOSPHATE [Concomitant]

REACTIONS (5)
  - RASH [None]
  - PERICARDITIS [None]
  - LOSS OF CONSCIOUSNESS [None]
  - HYPERSENSITIVITY [None]
  - STAPHYLOCOCCAL BACTERAEMIA [None]
